FAERS Safety Report 8474724-3 (Version None)
Quarter: 2012Q2

REPORT INFORMATION
  Report Type: 
  Country: None (occurrence: None)
  Receive Date: 20120628
  Receipt Date: 20120622
  Transmission Date: 20120825
  Serious: Yes (Hospitalization)
  Sender: FDA-Public Use
  Company Number: MX-PFIZER INC-2012152108

PATIENT
  Age: 66 Year
  Sex: Male
  Weight: 94 kg

DRUGS (1)
  1. LYRICA [Suspect]
     Indication: MYALGIA
     Dosage: 1 CAPSULE, 1X/DAY
     Route: 048
     Dates: start: 20120420, end: 20120507

REACTIONS (5)
  - LUNG DISORDER [None]
  - ASTHENIA [None]
  - DEPRESSED MOOD [None]
  - WEIGHT DECREASED [None]
  - CARDIAC ARREST [None]
